FAERS Safety Report 8300891-8 (Version None)
Quarter: 2012Q2

REPORT INFORMATION
  Report Type: 
  Country: None (occurrence: None)
  Receive Date: 20120420
  Receipt Date: 20120413
  Transmission Date: 20120825
  Serious: Yes (Other)
  Sender: FDA-Public Use
  Company Number: US-ASTELLAS-2012US002710

PATIENT

DRUGS (12)
  1. MAGNESIUM [Concomitant]
     Indication: PRODUCT USED FOR UNKNOWN INDICATION
     Dosage: 1500 MG, UID/QD
     Route: 048
  2. CALCIUM [Concomitant]
     Indication: PRODUCT USED FOR UNKNOWN INDICATION
     Dosage: 1200 MG, UID/QD
     Route: 048
  3. PREDNISONE TAB [Concomitant]
     Indication: PRODUCT USED FOR UNKNOWN INDICATION
     Dosage: 5 MG, UID/QD
     Route: 048
  4. TOPROL-XL [Concomitant]
     Indication: PRODUCT USED FOR UNKNOWN INDICATION
     Dosage: 25 MG, UID/QD
     Route: 048
  5. MYCOPHENOLATE MOFETIL (CELLCEPT) [Concomitant]
     Indication: LIVER TRANSPLANT
     Dosage: 500 MG, BID
     Route: 048
  6. ASCORBIC ACID [Concomitant]
     Indication: PRODUCT USED FOR UNKNOWN INDICATION
     Dosage: 1000 MG, UID/QD
     Route: 048
  7. PROGRAF [Suspect]
     Indication: LIVER TRANSPLANT
     Dosage: 2 MG, BID
     Route: 048
     Dates: start: 19910101
  8. PENICILLIN [Concomitant]
     Indication: PRODUCT USED FOR UNKNOWN INDICATION
     Dosage: 250 MG, BID
     Route: 048
  9. ACTONEL [Concomitant]
     Indication: PRODUCT USED FOR UNKNOWN INDICATION
     Dosage: 150 MG, MONTHLY
     Route: 065
  10. MULTI-VITAMIN [Concomitant]
     Indication: PRODUCT USED FOR UNKNOWN INDICATION
     Dosage: UNK
     Route: 065
  11. ASPIRIN [Concomitant]
     Indication: PRODUCT USED FOR UNKNOWN INDICATION
     Dosage: UNK
     Route: 065
  12. XANAX [Concomitant]
     Indication: ANXIETY
     Dosage: 0.5 MG, PRN
     Route: 048

REACTIONS (2)
  - RENAL TRANSPLANT [None]
  - IMMUNE SYSTEM DISORDER [None]
